FAERS Safety Report 5241439-4 (Version None)
Quarter: 2007Q1

REPORT INFORMATION
  Report Type: 
  Country: None (occurrence: None)
  Receive Date: 20070220
  Receipt Date: 20070209
  Transmission Date: 20070707
  Serious: Yes (Life-Threatening)
  Sender: FDA-Public Use
  Company Number: FR-AVENTIS-200310511FR

PATIENT
  Age: 72 Year
  Sex: Female

DRUGS (4)
  1. KETEK [Suspect]
     Route: 048
     Dates: start: 20030203, end: 20030203
  2. MESTINON [Concomitant]
     Route: 048
  3. CORTANCYL [Concomitant]
     Route: 048
  4. BRONCHOKOD [Concomitant]
     Indication: BRONCHITIS
     Route: 048
     Dates: start: 20030203

REACTIONS (5)
  - ACUTE RESPIRATORY DISTRESS SYNDROME [None]
  - ATRIOVENTRICULAR BLOCK [None]
  - BRADYCARDIA [None]
  - MUSCULAR WEAKNESS [None]
  - RESPIRATORY ARREST [None]
